FAERS Safety Report 8620583-5 (Version None)
Quarter: 2012Q3

REPORT INFORMATION
  Report Type: 
  Country: None (occurrence: None)
  Receive Date: 20120824
  Receipt Date: 20120608
  Transmission Date: 20120928
  Serious: Yes (Death, Hospitalization)
  Sender: FDA-Public Use
  Company Number: MA-ROXANE LABORATORIES, INC.-2012-EU-02952GD

PATIENT
  Age: 70 Year
  Sex: Female

DRUGS (3)
  1. PREDNISONE TAB [Suspect]
     Indication: PEMPHIGUS
     Dosage: 10 MG
  2. INSULIN [Concomitant]
     Indication: TYPE 2 DIABETES MELLITUS
  3. AZATHIOPRINE SODIUM [Suspect]
     Indication: PEMPHIGUS
     Dosage: 100 MG

REACTIONS (4)
  - DISSEMINATED CRYPTOCOCCOSIS [None]
  - SUBCUTANEOUS NODULE [None]
  - APATHY [None]
  - ALTERED STATE OF CONSCIOUSNESS [None]
